FAERS Safety Report 14330074 (Version 2)
Quarter: 2018Q1

REPORT INFORMATION
  Report Type: Spontaneous
  Country: DE (occurrence: DE)
  Receive Date: 20171227
  Receipt Date: 20180119
  Transmission Date: 20180509
  Serious: Yes (Hospitalization, Other)
  Sender: FDA-Public Use
  Company Number: DE-MYLANLABS-2017M1082221

PATIENT
  Age: 20 Year
  Sex: Female
  Weight: 54 kg

DRUGS (6)
  1. METRONIDAZOLE. [Concomitant]
     Active Substance: METRONIDAZOLE
     Indication: DIARRHOEA INFECTIOUS
     Dosage: DOSAGE FORM: UNSPECIFIED
     Route: 065
  2. INFLIXIMAB [Suspect]
     Active Substance: INFLIXIMAB
     Indication: COLITIS ULCERATIVE
     Dosage: 5 MG/KG, 8 WEEK, DOSAGE FORM: LYOPHILIZED POWDER
     Route: 042
  3. CEFTRIAXONE. [Suspect]
     Active Substance: CEFTRIAXONE
     Indication: DIARRHOEA INFECTIOUS
     Dosage: DOSAGE FORM: UNSPECIFIED
     Route: 065
  4. PARACETAMOL [Concomitant]
     Active Substance: ACETAMINOPHEN
     Indication: BACK PAIN
     Dosage: 2 G, QD,DOSAGE FORM: UNSPECIFIED
     Route: 065
  5. TACROLIMUS MYLAN [Suspect]
     Active Substance: TACROLIMUS
     Indication: PRODUCT USED FOR UNKNOWN INDICATION
     Dosage: DOSAGE FORM: UNSPECIFIED
     Route: 065
  6. HYDROCORTISONE. [Concomitant]
     Active Substance: HYDROCORTISONE
     Indication: PREMEDICATION
     Dosage: 100 MG, UNK,DOSAGE FORM: UNSPECIFIED
     Route: 065

REACTIONS (9)
  - Depressed level of consciousness [Unknown]
  - Unresponsive to stimuli [Unknown]
  - Off label use [Unknown]
  - Diarrhoea infectious [Unknown]
  - Colitis ulcerative [Unknown]
  - Catheter site pruritus [Unknown]
  - Acute hepatic failure [Recovering/Resolving]
  - Gastritis erosive [Unknown]
  - Back pain [Recovered/Resolved]

NARRATIVE: CASE EVENT DATE: 2012
